FAERS Safety Report 8120845-4 (Version None)
Quarter: 2012Q1

REPORT INFORMATION
  Report Type: 
  Country: None (occurrence: None)
  Receive Date: 20120208
  Receipt Date: 20120127
  Transmission Date: 20120608
  Serious: Yes (Hospitalization)
  Sender: FDA-Public Use
  Company Number: DE-AMGEN-DEUCT2012006995

PATIENT
  Age: 58 Year
  Sex: Male
  Weight: 92 kg

DRUGS (12)
  1. SPIRIVA [Concomitant]
     Dosage: UNK, 1-0-0
  2. PANTOPRAZOLE [Concomitant]
     Dosage: 40 MG, 1-0-0
  3. ETANERCEPT [Suspect]
     Indication: RHEUMATOID ARTHRITIS
     Dosage: 50 MG, QWK
     Dates: start: 20110618, end: 20111201
  4. NALOXONE/TILIDINE [Concomitant]
     Dosage: UNK
  5. FOSTER 100/6 [Concomitant]
     Dosage: UNK, 1-0-1
  6. CORTISONE ACETATE [Concomitant]
     Indication: RHEUMATOID ARTHRITIS
     Dosage: 5 MG, 1-0-0
  7. PREDNISOLONE [Concomitant]
     Indication: RHEUMATOID ARTHRITIS
     Dosage: 5 MG,
  8. CANDESARTAN CILEXETIL [Concomitant]
     Dosage: 16 MG, 1-0-1
  9. AMLODIPINE [Concomitant]
     Dosage: 10 MG, 1/2-0-1/2
  10. LEKOVIT CA [Concomitant]
     Dosage: UNK, 1-0-0
  11. PREDNISOLONE [Concomitant]
     Dosage: 5 MG, 1-0-0
  12. PREDNI-H-TABLINEN [Concomitant]
     Dosage: 20 UNK, 1/4-0-0

REACTIONS (1)
  - BLOOD PRESSURE ABNORMAL [None]
